FAERS Safety Report 9070260 (Version 2)
Quarter: 2013Q1

REPORT INFORMATION
  Report Type: Spontaneous
  Country: US (occurrence: US)
  Receive Date: 20130215
  Receipt Date: 20130322
  Transmission Date: 20140127
  Serious: Yes (Other)
  Sender: FDA-Public Use
  Company Number: US-ROCHE-1191075

PATIENT
  Age: 47 Year
  Sex: Male
  Weight: 87.17 kg

DRUGS (5)
  1. PEGASYS [Suspect]
     Indication: HEPATITIS C
     Route: 058
     Dates: start: 20130104, end: 20130110
  2. RIBAVIRIN [Suspect]
     Indication: HEPATITIS C
     Route: 048
     Dates: start: 20130104, end: 20130110
  3. PRILOSEC [Concomitant]
     Indication: GASTROOESOPHAGEAL REFLUX DISEASE
     Route: 048
     Dates: start: 20111016
  4. NADOLOL [Concomitant]
     Indication: VARICOSE VEIN
     Route: 048
     Dates: start: 20111016
  5. FERROUS SULPHATE [Concomitant]
     Indication: ANAEMIA
     Route: 048

REACTIONS (6)
  - Oral pain [Recovered/Resolved]
  - Skin ulcer [Recovered/Resolved]
  - Headache [Unknown]
  - Rash [Unknown]
  - Rash [Unknown]
  - Hepatic cirrhosis [Unknown]
